FAERS Safety Report 16252437 (Version 5)
Quarter: 2019Q4

REPORT INFORMATION
  Report Type: Report from Study
  Country: CA (occurrence: CA)
  Receive Date: 20190429
  Receipt Date: 20191203
  Transmission Date: 20200122
  Serious: Yes (Death, Hospitalization)
  Sender: FDA-Public Use
  Company Number: CA-ACTELION-A-US2019-189602

PATIENT
  Age: 78 Year
  Sex: Male

DRUGS (20)
  1. ALLOPURINOL. [Concomitant]
     Active Substance: ALLOPURINOL
  2. MAGNESIUM [Concomitant]
     Active Substance: MAGNESIUM
  3. ELIQUIS [Concomitant]
     Active Substance: APIXABAN
  4. UPTRAVI [Suspect]
     Active Substance: SELEXIPAG
     Indication: PULMONARY ARTERIAL HYPERTENSION
     Dosage: 1000 MCG
     Route: 048
     Dates: start: 20190304
  5. UPTRAVI [Suspect]
     Active Substance: SELEXIPAG
     Dosage: 1200 MCG
     Route: 048
     Dates: start: 20190506
  6. UPTRAVI [Suspect]
     Active Substance: SELEXIPAG
     Dosage: 1000 MCG, BID
     Route: 048
  7. LYRICA [Concomitant]
     Active Substance: PREGABALIN
  8. LANTUS [Concomitant]
     Active Substance: INSULIN GLARGINE
  9. ZOCARE [Concomitant]
     Active Substance: OFLOXACIN
  10. TRACLEER [Suspect]
     Active Substance: BOSENTAN
     Indication: PULMONARY ARTERIAL HYPERTENSION
     Dosage: 125 MG
     Route: 048
     Dates: start: 20180712
  11. DILAUDID [Concomitant]
     Active Substance: HYDROMORPHONE HYDROCHLORIDE
  12. MARIJUANA [Concomitant]
     Active Substance: CANNABIS SATIVA SUBSP. INDICA TOP
  13. LASIX [Concomitant]
     Active Substance: FUROSEMIDE
  14. CEFTRIAXONE. [Concomitant]
     Active Substance: CEFTRIAXONE
  15. JANUVIA [Concomitant]
     Active Substance: SITAGLIPTIN PHOSPHATE
  16. GLICLAZIDE [Concomitant]
     Active Substance: GLICLAZIDE
  17. INCRUSE ELLIPTA [Concomitant]
     Active Substance: UMECLIDINIUM BROMIDE
  18. METOLAZONE. [Concomitant]
     Active Substance: METOLAZONE
  19. BISOPROLOL [Concomitant]
     Active Substance: BISOPROLOL
  20. ADCIRCA [Concomitant]
     Active Substance: TADALAFIL

REACTIONS (10)
  - Death [Fatal]
  - Pain in jaw [Not Recovered/Not Resolved]
  - Oedema peripheral [Unknown]
  - Device difficult to use [Not Recovered/Not Resolved]
  - Cellulitis [Recovering/Resolving]
  - Hospitalisation [Unknown]
  - Fall [Unknown]
  - Unevaluable event [Unknown]
  - Diarrhoea [Recovered/Resolved]
  - Tibia fracture [Unknown]

NARRATIVE: CASE EVENT DATE: 20190506
